FAERS Safety Report 7270641-5 (Version None)
Quarter: 2011Q1

REPORT INFORMATION
  Report Type: 
  Country: None (occurrence: None)
  Receive Date: 20110202
  Receipt Date: 20110126
  Transmission Date: 20110831
  Serious: Yes (Life-Threatening, Disabling, Other)
  Sender: FDA-Public Use
  Company Number: A0909470A

PATIENT
  Age: 28 Year
  Sex: Female
  Weight: 92 kg

DRUGS (9)
  1. METHADONE [Concomitant]
  2. FUROSEMIDE [Concomitant]
  3. LAMICTAL [Concomitant]
  4. ZOCOR [Concomitant]
  5. ARIXTRA [Suspect]
     Indication: THROMBOSIS
     Dosage: 7.5MG PER DAY
     Route: 058
     Dates: start: 20080101
  6. TOPAMAX [Concomitant]
  7. PLAVIX [Concomitant]
  8. MOTRIN [Concomitant]
  9. NEURONTIN [Concomitant]

REACTIONS (2)
  - INCREASED TENDENCY TO BRUISE [None]
  - DRUG LEVEL CHANGED [None]
